FAERS Safety Report 7617112-1 (Version None)
Quarter: 2011Q3

REPORT INFORMATION
  Report Type: 
  Country: None (occurrence: None)
  Receive Date: 20110718
  Receipt Date: 20110701
  Transmission Date: 20111222
  Serious: Yes (Hospitalization, Other)
  Sender: FDA-Public Use
  Company Number: US-BAYER-201041787NA

PATIENT
  Age: 56 Year
  Sex: Male
  Weight: 114 kg

DRUGS (65)
  1. BACLOFEN [Concomitant]
  2. COLACE [Concomitant]
  3. NORTRIPTYLINE HCL [Concomitant]
  4. PANCURONIUM [Concomitant]
     Dosage: 10.0 MG, UNK
     Route: 042
     Dates: start: 20050622
  5. PANCURONIUM [Concomitant]
     Dosage: 2.0 MG, UNK
     Route: 042
     Dates: start: 20050622
  6. CLINDAMYCIN [Concomitant]
     Dosage: 600 MG, UNK
     Route: 042
     Dates: start: 20050622
  7. PROTAMINE SULFATE [Concomitant]
     Dosage: 400 MG, UNK
     Route: 042
     Dates: start: 20050622
  8. LEVOFLOXACIN [Concomitant]
     Dosage: UNK
     Dates: end: 20050420
  9. ZANTAC [Concomitant]
  10. ACETYLSALICYLIC ACID SRT [Concomitant]
  11. FOLATE SODIUM [Concomitant]
  12. SOTALOL HCL [Concomitant]
  13. VASOPRESSIN [Concomitant]
     Dosage: 2 U, Q1HR
     Route: 042
     Dates: start: 20050622
  14. ISOPROTERENOL HCL [Concomitant]
     Dosage: 2.0 MCG/KG/MINUTE
     Route: 042
     Dates: start: 20050622
  15. ALBUMIN (HUMAN) [Concomitant]
     Dosage: 12.5 G, UNK
     Route: 042
     Dates: start: 20050622
  16. HEPARIN [Concomitant]
     Dosage: 3500 U, UNK
     Route: 042
     Dates: start: 20050622
  17. PHENYLEPHRINE HCL [Concomitant]
     Dosage: 50 MCG
     Route: 042
     Dates: start: 20050622
  18. AMBIEN [Concomitant]
  19. METHADONE HCL [Concomitant]
     Dosage: 5 MG, TID
     Route: 048
  20. ACETAMINOPHEN [Concomitant]
  21. IRON SULFATETHIAMIN COMPOUND TAB [Concomitant]
  22. RED BLOOD CELLS [Concomitant]
     Dosage: 2 U, UNK
     Route: 042
     Dates: start: 20050622
  23. INSULIN [Concomitant]
     Dosage: 2 U, UNK
     Route: 058
     Dates: start: 20050622
  24. INSULIN [Concomitant]
     Dosage: 4 U, Q1HR
     Route: 042
     Dates: start: 20050622
  25. VASOPRESSIN [Concomitant]
     Dosage: 3 U Q1HR
     Route: 042
     Dates: start: 20050622
  26. NOREPINEPHRINE BITARTRATE [Concomitant]
     Dosage: 0.05 MCG/KG/MINUTE
     Route: 042
     Dates: start: 20050622
  27. FLAGYL [Concomitant]
  28. AMIODARONE HCL [Concomitant]
     Dosage: 200 MG, QD
     Route: 048
     Dates: start: 20050101
  29. TRASYLOL [Suspect]
     Dosage: 200 ML LOADING DOSE
     Route: 042
     Dates: start: 20050622
  30. MUPIROCIN [Concomitant]
  31. ALLOPURINOL [Concomitant]
  32. FUROSEMIDE [Concomitant]
  33. PLATELETS [Concomitant]
     Dosage: 10 UNK, UNK
     Route: 042
     Dates: start: 20050622
  34. MIDAZOLAM HCL [Concomitant]
     Dosage: 8.0 MG, UNK
     Route: 042
     Dates: start: 20050622
  35. CALCIUM CARBONATE [Concomitant]
     Dosage: 500 MG
     Route: 042
     Dates: start: 20050622
  36. NORVASC [Concomitant]
     Dosage: 10 MG, QD
     Route: 048
  37. OXYCODONE HCL [Concomitant]
  38. AMLODIPINE [Concomitant]
  39. PRAVASTATIN [Concomitant]
  40. LISINOPRIL [Concomitant]
     Dosage: 20 MG, BID
     Dates: start: 19960101, end: 20020101
  41. MILRINONE [Concomitant]
     Dosage: 0.250 MCG/KG/MINUTE
     Route: 042
     Dates: start: 20050622
  42. FENTANYL-100 [Concomitant]
     Dosage: 250.0 MCG
     Dates: start: 20050622
  43. CEFUROXIME [Concomitant]
     Dosage: 1.50 MG, UNK
     Route: 042
     Dates: start: 20050622
  44. SODIUM CHLORIDE [Concomitant]
     Dosage: UNK
     Route: 042
     Dates: start: 20050622
  45. SOLU-MEDROL [Concomitant]
     Dosage: 500 MG, UNK
     Route: 042
     Dates: start: 20050622
  46. COLCHICINE [Concomitant]
  47. NYSTATIN [Concomitant]
  48. VICODIN [Concomitant]
  49. CARVEDILOL [Concomitant]
     Dosage: 12.5 MG, QD
     Route: 048
  50. HYDRALAZINE HCL [Concomitant]
  51. MAGNESIUM [Concomitant]
  52. POTASSIUM CHLORIDE [Concomitant]
  53. DOPAMINE HCL [Concomitant]
     Dosage: 2 MCG/KG/MINUTE
     Route: 042
     Dates: start: 20050622
  54. PROPOFOL [Concomitant]
     Dosage: 45 MCG/KG/MINUTE
     Route: 042
     Dates: start: 20050622
  55. ZOSYN [Concomitant]
  56. PYRIMETHAMINE TAB [Concomitant]
  57. TRASYLOL [Suspect]
     Indication: HEART TRANSPLANT
     Dosage: 50 ML, Q1HR
     Route: 042
     Dates: start: 20050622, end: 20050622
  58. DOXYCYCLINE [Concomitant]
  59. FENTANYL-100 [Concomitant]
     Dosage: 500.0 MCG
     Route: 042
     Dates: start: 20050622
  60. NITROGLYCERIN [Concomitant]
     Dosage: 0.4 MG / PER PROTOCOL
     Route: 060
     Dates: start: 20050429
  61. FRESH FROZEN PLASMA [Concomitant]
     Dosage: 4 U, UNK
     Route: 042
     Dates: start: 20050622
  62. CALCIUM CARBONATE [Concomitant]
     Dosage: 500 MG, UNK
     Route: 042
     Dates: start: 20050622
  63. CALCIUM CARBONATE [Concomitant]
     Dosage: 1000 MG
     Route: 042
     Dates: start: 20050622
  64. PROTAMINE SULFATE [Concomitant]
     Dosage: 50 MG, UNK
     Route: 042
     Dates: start: 20050622
  65. LINEZOLID [Concomitant]

REACTIONS (11)
  - FEAR [None]
  - ANXIETY [None]
  - RENAL INJURY [None]
  - INJURY [None]
  - DEPRESSION [None]
  - RENAL FAILURE [None]
  - RENAL IMPAIRMENT [None]
  - EMOTIONAL DISTRESS [None]
  - STRESS [None]
  - UNEVALUABLE EVENT [None]
  - PAIN [None]
